FAERS Safety Report 24631987 (Version 2)
Quarter: 2024Q4

REPORT INFORMATION
  Report Type: Spontaneous
  Country: US (occurrence: US)
  Receive Date: 20241118
  Receipt Date: 20241118
  Transmission Date: 20250114
  Serious: Yes (Other)
  Sender: ELI LILLY AND COMPANY
  Company Number: US-ELI_LILLY_AND_COMPANY-US202411006837

PATIENT
  Age: 43 Year
  Sex: Female

DRUGS (24)
  1. MOUNJARO [Suspect]
     Active Substance: TIRZEPATIDE
     Indication: Blood glucose abnormal
     Dosage: 2.5 MG, WEEKLY (1/W)
     Route: 065
  2. MOUNJARO [Suspect]
     Active Substance: TIRZEPATIDE
     Indication: Blood glucose abnormal
     Dosage: 2.5 MG, WEEKLY (1/W)
     Route: 065
  3. MOUNJARO [Suspect]
     Active Substance: TIRZEPATIDE
     Indication: Blood glucose abnormal
     Dosage: 2.5 MG, WEEKLY (1/W)
     Route: 065
  4. MOUNJARO [Suspect]
     Active Substance: TIRZEPATIDE
     Indication: Blood glucose abnormal
     Dosage: 2.5 MG, WEEKLY (1/W)
     Route: 065
  5. MOUNJARO [Suspect]
     Active Substance: TIRZEPATIDE
     Indication: Palpitations
  6. MOUNJARO [Suspect]
     Active Substance: TIRZEPATIDE
     Indication: Palpitations
  7. MOUNJARO [Suspect]
     Active Substance: TIRZEPATIDE
     Indication: Palpitations
  8. MOUNJARO [Suspect]
     Active Substance: TIRZEPATIDE
     Indication: Palpitations
  9. MOUNJARO [Suspect]
     Active Substance: TIRZEPATIDE
     Indication: Blood glucose abnormal
     Dosage: 5 MG, WEEKLY (1/W)
     Route: 065
  10. MOUNJARO [Suspect]
     Active Substance: TIRZEPATIDE
     Indication: Blood glucose abnormal
     Dosage: 5 MG, WEEKLY (1/W)
     Route: 065
  11. MOUNJARO [Suspect]
     Active Substance: TIRZEPATIDE
     Indication: Blood glucose abnormal
     Dosage: 5 MG, WEEKLY (1/W)
     Route: 065
  12. MOUNJARO [Suspect]
     Active Substance: TIRZEPATIDE
     Indication: Blood glucose abnormal
     Dosage: 5 MG, WEEKLY (1/W)
     Route: 065
  13. MOUNJARO [Suspect]
     Active Substance: TIRZEPATIDE
     Indication: Palpitations
  14. MOUNJARO [Suspect]
     Active Substance: TIRZEPATIDE
     Indication: Palpitations
  15. MOUNJARO [Suspect]
     Active Substance: TIRZEPATIDE
     Indication: Palpitations
  16. MOUNJARO [Suspect]
     Active Substance: TIRZEPATIDE
     Indication: Palpitations
  17. MOUNJARO [Suspect]
     Active Substance: TIRZEPATIDE
     Indication: Blood glucose increased
     Dosage: 7.5 MG, WEEKLY (1/W)
     Route: 065
  18. MOUNJARO [Suspect]
     Active Substance: TIRZEPATIDE
     Indication: Blood glucose increased
     Dosage: 7.5 MG, WEEKLY (1/W)
     Route: 065
  19. MOUNJARO [Suspect]
     Active Substance: TIRZEPATIDE
     Indication: Blood glucose increased
     Dosage: 7.5 MG, WEEKLY (1/W)
     Route: 065
  20. MOUNJARO [Suspect]
     Active Substance: TIRZEPATIDE
     Indication: Blood glucose increased
     Dosage: 7.5 MG, WEEKLY (1/W)
     Route: 065
  21. MOUNJARO [Suspect]
     Active Substance: TIRZEPATIDE
     Indication: Palpitations
  22. MOUNJARO [Suspect]
     Active Substance: TIRZEPATIDE
     Indication: Palpitations
  23. MOUNJARO [Suspect]
     Active Substance: TIRZEPATIDE
     Indication: Palpitations
  24. MOUNJARO [Suspect]
     Active Substance: TIRZEPATIDE
     Indication: Palpitations

REACTIONS (5)
  - Seizure [Unknown]
  - Blood glucose decreased [Unknown]
  - Off label use [Unknown]
  - Intentional dose omission [Unknown]
  - Diarrhoea [Unknown]
